FAERS Safety Report 7522423-4 (Version None)
Quarter: 2011Q2

REPORT INFORMATION
  Report Type: 
  Country: None (occurrence: None)
  Receive Date: 20110525
  Receipt Date: 20110503
  Transmission Date: 20111010
  Serious: Yes (Hospitalization, Other)
  Sender: FDA-Public Use
  Company Number: 2011P1006287

PATIENT
  Sex: Female

DRUGS (3)
  1. NUDERM SUNFADER SPF 15 [Suspect]
  2. NUDERM BLENDER [Suspect]
  3. NUDERM CLEAR [Suspect]

REACTIONS (5)
  - DIZZINESS [None]
  - CHEST PAIN [None]
  - HEADACHE [None]
  - MUSCULAR WEAKNESS [None]
  - HYPERTENSION [None]
